FAERS Safety Report 6297998-6 (Version None)
Quarter: 2009Q3

REPORT INFORMATION
  Report Type: 
  Country: None (occurrence: None)
  Receive Date: 20090805
  Receipt Date: 20090731
  Transmission Date: 20100115
  Serious: Yes (Hospitalization)
  Sender: FDA-Public Use
  Company Number: B0587176A

PATIENT
  Sex: Female

DRUGS (2)
  1. ONDANSETRON HCL [Suspect]
     Dosage: 4MG AS REQUIRED
     Route: 048
     Dates: start: 20070101
  2. BLINDED TRIAL MEDICATION [Concomitant]
     Dates: start: 20090227

REACTIONS (2)
  - COLITIS ISCHAEMIC [None]
  - RECTAL HAEMORRHAGE [None]
